FAERS Safety Report 18371333 (Version 1)
Quarter: 2020Q4

REPORT INFORMATION
  Report Type: Spontaneous
  Country: US (occurrence: US)
  Receive Date: 20201012
  Receipt Date: 20201012
  Transmission Date: 20210114
  Serious: Yes (Hospitalization, Other)
  Sender: FDA-Public Use
  Company Number: US-HIKMA PHARMACEUTICALS USA INC.-US-H14001-20-03015

PATIENT
  Age: 65 Year
  Sex: Male

DRUGS (1)
  1. INFUMORPH [Suspect]
     Active Substance: MORPHINE SULFATE
     Indication: SPINAL PAIN
     Route: 037

REACTIONS (6)
  - Vomiting [Not Recovered/Not Resolved]
  - Feeling abnormal [Not Recovered/Not Resolved]
  - Underdose [Recovered/Resolved]
  - Drug ineffective [Not Recovered/Not Resolved]
  - Withdrawal syndrome [Not Recovered/Not Resolved]
  - Headache [Not Recovered/Not Resolved]

NARRATIVE: CASE EVENT DATE: 202006
